FAERS Safety Report 9725253 (Version 1)
Quarter: 2013Q4

REPORT INFORMATION
  Report Type: Spontaneous
  Country: US (occurrence: None)
  Receive Date: 20131202
  Receipt Date: 20131202
  Transmission Date: 20140711
  Serious: No
  Sender: FDA-Public Use
  Company Number: None

PATIENT
  Age: 34 Year
  Sex: Female
  Weight: 65.32 kg

DRUGS (1)
  1. PARAGUARD [Suspect]
     Dosage: COPPER IUD?SERIAL # ECR1885?OTHER # 5128520401
     Dates: start: 20070219, end: 20131108

REACTIONS (5)
  - Pain [None]
  - Device breakage [None]
  - Device dislocation [None]
  - Complication of device removal [None]
  - Procedural pain [None]
